FAERS Safety Report 7031137-9 (Version None)
Quarter: 2010Q4

REPORT INFORMATION
  Report Type: 
  Country: None (occurrence: None)
  Receive Date: 20101006
  Receipt Date: 20100927
  Transmission Date: 20110411
  Serious: Yes (Hospitalization, Other)
  Sender: FDA-Public Use
  Company Number: US-US-EMD SERONO, INC.-7019208

PATIENT
  Sex: Male
  Weight: 111 kg

DRUGS (1)
  1. REBIF [Suspect]
     Indication: MULTIPLE SCLEROSIS
     Dates: start: 20050101, end: 20070701

REACTIONS (7)
  - BLOOD CHOLESTEROL ABNORMAL [None]
  - CORONARY ARTERY OCCLUSION [None]
  - GASTRIC DISORDER [None]
  - HYPERTENSION [None]
  - MOBILITY DECREASED [None]
  - PARAESTHESIA [None]
  - TYPE 2 DIABETES MELLITUS [None]
